FAERS Safety Report 24186711 (Version 3)
Quarter: 2025Q3

REPORT INFORMATION
  Report Type: Report from Study
  Country: US (occurrence: US)
  Receive Date: 20240808
  Receipt Date: 20250903
  Transmission Date: 20251021
  Serious: Yes (Hospitalization, Other)
  Sender: NOVITIUM PHARMA
  Company Number: US-NOVITIUMPHARMA-2024USNVP00108

PATIENT
  Age: 2 Year
  Sex: Female
  Weight: 12.247 kg

DRUGS (6)
  1. CARGLUMIC ACID [Suspect]
     Active Substance: CARGLUMIC ACID
     Indication: Methylmalonic acidaemia
     Route: 048
     Dates: start: 20220921
  2. CARGLUMIC ACID [Suspect]
     Active Substance: CARGLUMIC ACID
     Route: 048
     Dates: start: 20220921
  3. CARGLUMIC ACID [Suspect]
     Active Substance: CARGLUMIC ACID
  4. LANSOPRAZOLE [Concomitant]
     Active Substance: LANSOPRAZOLE
     Indication: Product used for unknown indication
     Route: 048
  5. LEVOCARNITINE [Concomitant]
     Active Substance: LEVOCARNITINE
     Indication: Product used for unknown indication
  6. VIOKACE [Concomitant]
     Active Substance: PANCRELIPASE AMYLASE\PANCRELIPASE LIPASE\PANCRELIPASE PROTEASE

REACTIONS (7)
  - Pancreatitis [Unknown]
  - Pain [Unknown]
  - Acidosis [Unknown]
  - Vomiting [Not Recovered/Not Resolved]
  - Incorrect route of product administration [Unknown]
  - Off label use [Unknown]
  - Gastroenteritis [Unknown]
